FAERS Safety Report 7031152-5 (Version None)
Quarter: 2010Q4

REPORT INFORMATION
  Report Type: 
  Country: None (occurrence: None)
  Receive Date: 20101006
  Receipt Date: 20100930
  Transmission Date: 20110411
  Serious: Yes (Death, Hospitalization)
  Sender: FDA-Public Use
  Company Number: US-ELI_LILLY_AND_COMPANY-US201010000052

PATIENT
  Age: 74 Year
  Sex: Female

DRUGS (2)
  1. ALIMTA [Suspect]
     Indication: NON-SMALL CELL LUNG CANCER METASTATIC
     Dosage: UNK, OTHER
  2. CARBOPLATIN [Concomitant]
     Dosage: UNK, OTHER

REACTIONS (2)
  - EMPHYSEMA [None]
  - PNEUMOTHORAX [None]
